FAERS Safety Report 17909258 (Version 2)
Quarter: 2020Q4

REPORT INFORMATION
  Report Type: Spontaneous
  Country: ES (occurrence: ES)
  Receive Date: 20200617
  Receipt Date: 20201012
  Transmission Date: 20210113
  Serious: Yes (Hospitalization)
  Sender: FDA-Public Use
  Company Number: NVSC2020ES169384

PATIENT
  Age: 39 Year
  Sex: Female

DRUGS (4)
  1. IBUPROFEN. [Suspect]
     Active Substance: IBUPROFEN
     Indication: PAIN
     Dosage: 600 MG, Q8H
     Route: 048
     Dates: start: 20190206, end: 20190210
  2. NOLOTIL (METAMIZOLE MAGNESIUM) [Suspect]
     Active Substance: METAMIZOLE MAGNESIUM
     Indication: PAIN
     Dosage: 6 G, QD
     Route: 065
     Dates: start: 20190206, end: 20190210
  3. LIDOCAINA BRAUN [Suspect]
     Active Substance: LIDOCAINE HYDROCHLORIDE
     Indication: PRODUCT USED FOR UNKNOWN INDICATION
     Dosage: 10 MG/ML, UNKNOWN
     Route: 065
     Dates: start: 20180709, end: 20180709
  4. MEPIVACAINA [Suspect]
     Active Substance: MEPIVACAINE HYDROCHLORIDE
     Indication: DENTAL OPERATION
     Dosage: UNK
     Route: 065
     Dates: start: 20180625, end: 20180625

REACTIONS (1)
  - Hepatic failure [Recovered/Resolved]

NARRATIVE: CASE EVENT DATE: 20190308
